FAERS Safety Report 22014735 (Version 2)
Quarter: 2023Q1

REPORT INFORMATION
  Report Type: Report from Study
  Country: CO (occurrence: CO)
  Receive Date: 20230221
  Receipt Date: 20230321
  Transmission Date: 20230417
  Serious: Yes (Hospitalization)
  Sender: FDA-Public Use
  Company Number: CO-002147023-NVSC2022CO162808

PATIENT
  Sex: Female

DRUGS (1)
  1. KISQALI [Suspect]
     Active Substance: RIBOCICLIB
     Indication: Hormone receptor positive HER2 negative breast cancer
     Dosage: UNK
     Route: 048
     Dates: end: 202212

REACTIONS (5)
  - Ovarian mass [Unknown]
  - Abdominal pain [Unknown]
  - Illness [Unknown]
  - Pain [Unknown]
  - Renal disorder [Unknown]
